FAERS Safety Report 8222630-1 (Version None)
Quarter: 2012Q1

REPORT INFORMATION
  Report Type: 
  Country: None (occurrence: None)
  Receive Date: 20120303
  Receipt Date: 20120305
  Transmission Date: 20120608
  Serious: Yes (Death, Life-Threatening)
  Sender: FDA-Public Use
  Company Number: 2012SP011888

PATIENT
  Age: 70 Year
  Sex: Male

DRUGS (12)
  1. AMLODIPINE [Suspect]
     Indication: PRODUCT USED FOR UNKNOWN INDICATION
     Dosage: 5 MG; PO
     Route: 048
     Dates: end: 20111121
  2. DOMINAL (PROTHIPENDYL HYDROCHLORIDE) [Suspect]
     Indication: PRODUCT USED FOR UNKNOWN INDICATION
     Dosage: 40 MG; PO
     Route: 048
     Dates: start: 20111120, end: 20111120
  3. RISPERDAL [Suspect]
     Indication: PRODUCT USED FOR UNKNOWN INDICATION
     Dosage: 5 MG; PO, 2 M6; PO
     Route: 048
     Dates: start: 20111118, end: 20111121
  4. RISPERDAL [Suspect]
     Indication: PRODUCT USED FOR UNKNOWN INDICATION
     Dosage: 5 MG; PO, 2 M6; PO
     Route: 048
     Dates: end: 20111117
  5. IBUPROFEN [Concomitant]
  6. TILIDIN (VALORON N /00628301/) [Suspect]
     Indication: PRODUCT USED FOR UNKNOWN INDICATION
     Dosage: 208 MG; PO
     Route: 048
     Dates: end: 20111121
  7. METFORMIN HCL [Concomitant]
  8. MIRTAZAPINE [Suspect]
     Indication: PRODUCT USED FOR UNKNOWN INDICATION
     Dosage: 45 MG; PO, 30 MG; PO
     Route: 048
     Dates: end: 20111117
  9. MIRTAZAPINE [Suspect]
     Indication: PRODUCT USED FOR UNKNOWN INDICATION
     Dosage: 45 MG; PO, 30 MG; PO
     Route: 048
     Dates: start: 20111118, end: 20111121
  10. MELPERON (MELPERONE HYDROCHLORIDE) [Suspect]
     Indication: PRODUCT USED FOR UNKNOWN INDICATION
     Dosage: PO
     Route: 048
     Dates: end: 20111117
  11. JONOSTERIL [Concomitant]
  12. PANTOPRAZOLE [Concomitant]

REACTIONS (7)
  - HALLUCINATION, VISUAL [None]
  - ABNORMAL BEHAVIOUR [None]
  - FUMBLING [None]
  - INSOMNIA [None]
  - PNEUMONIA [None]
  - FATIGUE [None]
  - APPARENT LIFE THREATENING EVENT [None]
